FAERS Safety Report 13557915 (Version 2)
Quarter: 2021Q1

REPORT INFORMATION
  Report Type: Report from Study
  Country: US (occurrence: US)
  Receive Date: 20170517
  Receipt Date: 20210322
  Transmission Date: 20210419
  Serious: No
  Sender: FDA-Public Use
  Company Number: US-ACADIA PHARMACEUTICALS INC.-ACA-2017-003203

PATIENT
  Age: 73 Year
  Sex: Male

DRUGS (25)
  1. NUPLAZID [Suspect]
     Active Substance: PIMAVANSERIN TARTRATE
     Indication: PARKINSON^S DISEASE
     Dosage: 34 MILLIGRAM, QD
     Route: 048
     Dates: start: 201912
  2. ATROVENT HFA [Concomitant]
     Active Substance: IPRATROPIUM BROMIDE
  3. RED YEAST RICE [Concomitant]
     Active Substance: DIETARY SUPPLEMENT
  4. RIVASTIGMINE. [Concomitant]
     Active Substance: RIVASTIGMINE
  5. FLORASTOR [LACTOBACILLUS ACIDOPHILUS] [Concomitant]
  6. MULTIVITAMINS [VITAMINS NOS] [Concomitant]
     Active Substance: VITAMINS
  7. SENNA S [Concomitant]
     Active Substance: DOCUSATE SODIUM\SENNA LEAF
  8. OS CAL [CALCIUM CARBONATE] [Concomitant]
     Dosage: 500
  9. FISH OIL [Concomitant]
     Active Substance: FISH OIL
     Dosage: 100?150 MG
  10. QUETIAPINE FUMARATE. [Concomitant]
     Active Substance: QUETIAPINE FUMARATE
  11. ASPIRIN. [Concomitant]
     Active Substance: ASPIRIN
  12. NUPLAZID [Suspect]
     Active Substance: PIMAVANSERIN TARTRATE
     Indication: PARKINSON^S DISEASE PSYCHOSIS
     Dosage: 34 MG, QD
     Route: 048
     Dates: start: 201704
  13. NUPLAZID [Suspect]
     Active Substance: PIMAVANSERIN TARTRATE
     Indication: HALLUCINATION
  14. NUPLAZID [Suspect]
     Active Substance: PIMAVANSERIN TARTRATE
     Indication: DELUSION
  15. MONTELUKAST SODIUM. [Concomitant]
     Active Substance: MONTELUKAST SODIUM
  16. COENZYME Q10 [Concomitant]
     Active Substance: DIETARY SUPPLEMENT\UBIDECARENONE
  17. MIRALAX [Concomitant]
     Active Substance: POLYETHYLENE GLYCOL 3350
     Dosage: 17G/DOSE POWDER
  18. CLONAZEPAM. [Concomitant]
     Active Substance: CLONAZEPAM
  19. DUOPA [Concomitant]
     Active Substance: CARBIDOPA\LEVODOPA
  20. VITAMIN C [Concomitant]
     Active Substance: ASCORBIC ACID
  21. AMOXICILLIN. [Concomitant]
     Active Substance: AMOXICILLIN
  22. FLOMAX [Concomitant]
     Active Substance: TAMSULOSIN HYDROCHLORIDE
  23. GABAPENTIN. [Concomitant]
     Active Substance: GABAPENTIN
  24. VITAMIN D3 [Concomitant]
     Active Substance: CHOLECALCIFEROL
  25. EXCEDRIN MIGRAINE [Concomitant]
     Active Substance: ACETAMINOPHEN\ASPIRIN\CAFFEINE
     Dosage: 250?250?65

REACTIONS (3)
  - Illness [Unknown]
  - Malaise [Unknown]
  - Product dose omission issue [Unknown]

NARRATIVE: CASE EVENT DATE: 201704
